FAERS Safety Report 8783729 (Version 1)
Quarter: 2012Q4

REPORT INFORMATION
  Report Type: Spontaneous
  Country: US (occurrence: None)
  Receive Date: 20120829
  Receipt Date: 20120829
  Transmission Date: 20130627
  Serious: No
  Sender: FDA-Public Use
  Company Number: 2012P1054301

PATIENT
  Age: 54 Year
  Sex: Male
  Weight: 68.04 kg

DRUGS (3)
  1. LORAZEPAM [Suspect]
     Indication: SEIZURE
     Route: 030
     Dates: start: 20120801, end: 20120801
  2. DILANTIN [Concomitant]
  3. CIPROFLOXACIN [Concomitant]

REACTIONS (2)
  - Drug level decreased [None]
  - Therapeutic response decreased [None]
